FAERS Safety Report 8904556 (Version 1)
Quarter: 2012Q4

REPORT INFORMATION
  Report Type: Report from Study
  Country: BR (occurrence: BR)
  Receive Date: 20121112
  Receipt Date: 20121112
  Transmission Date: 20130627
  Serious: Yes (Death, Hospitalization)
  Sender: FDA-Public Use
  Company Number: BR-ABBOTT-12P-020-1006529-00

PATIENT
  Sex: Male

DRUGS (3)
  1. HUMIRA [Suspect]
     Indication: CROHN^S DISEASE
     Route: 058
     Dates: start: 20120914, end: 20120914
  2. HUMIRA [Suspect]
     Route: 058
     Dates: start: 20120928, end: 20120928
  3. HUMIRA [Suspect]
     Route: 058
     Dates: start: 20121012

REACTIONS (1)
  - Crohn^s disease [Fatal]
